FAERS Safety Report 11864428 (Version 1)
Quarter: 2015Q4

REPORT INFORMATION
  Report Type: Spontaneous
  Country: US (occurrence: US)
  Receive Date: 20151223
  Receipt Date: 20151223
  Transmission Date: 20160305
  Serious: No
  Sender: FDA-Public Use
  Company Number: US-BAYER-2015-483180

PATIENT
  Sex: Female

DRUGS (1)
  1. LEVITRA [Suspect]
     Active Substance: VARDENAFIL HYDROCHLORIDE TRIHYDRATE

REACTIONS (5)
  - Feeling hot [None]
  - Headache [None]
  - Exposure via partner [None]
  - Flushing [None]
  - Drug hypersensitivity [None]
